FAERS Safety Report 14074119 (Version 7)
Quarter: 2017Q4

REPORT INFORMATION
  Report Type: Report from Study
  Country: TR (occurrence: TR)
  Receive Date: 20171010
  Receipt Date: 20171214
  Transmission Date: 20180321
  Serious: Yes (Hospitalization)
  Sender: FDA-Public Use
  Company Number: TR-ASTRAZENECA-2017SF02713

PATIENT
  Age: 24798 Day
  Sex: Male

DRUGS (7)
  1. ELIGARD [Concomitant]
     Active Substance: LEUPROLIDE ACETATE
     Indication: PROSTATE CANCER
     Route: 058
     Dates: start: 20160501
  2. ZALDIAR [Concomitant]
     Active Substance: ACETAMINOPHEN\TRAMADOL HYDROCHLORIDE
     Indication: ABDOMINAL PAIN
     Dosage: 100 MG THREE TIMES A DAY
     Route: 048
     Dates: start: 20170821
  3. OLAPARIB. [Suspect]
     Active Substance: OLAPARIB
     Indication: HORMONE-REFRACTORY PROSTATE CANCER
     Dosage: 300 MG TWO TIMES A DAY
     Route: 048
     Dates: start: 20170811, end: 20171006
  4. KYTRIL [Concomitant]
     Active Substance: GRANISETRON HYDROCHLORIDE
     Indication: NAUSEA
     Dosage: 1 MG TWO TIMES A DAY
     Route: 048
     Dates: start: 20170908
  5. DESAL [Concomitant]
     Active Substance: FUROSEMIDE
     Indication: DYSURIA
     Dosage: 40 MG
     Route: 048
     Dates: start: 20170822
  6. ALDOCTONE [Concomitant]
     Route: 048
     Dates: start: 20170822
  7. METPAMID [Concomitant]
     Active Substance: METOCLOPRAMIDE
     Indication: NAUSEA
     Dosage: 10 MG THREE TIMES A DAY
     Route: 048
     Dates: start: 20170908

REACTIONS (3)
  - Pneumonitis [Recovering/Resolving]
  - Portal vein thrombosis [Recovering/Resolving]
  - Anaemia [Recovered/Resolved]

NARRATIVE: CASE EVENT DATE: 20171003
